FAERS Safety Report 6065829-5 (Version None)
Quarter: 2009Q1

REPORT INFORMATION
  Report Type: 
  Country: None (occurrence: None)
  Receive Date: 20090205
  Receipt Date: 20090127
  Transmission Date: 20090719
  Serious: No
  Sender: FDA-Public Use
  Company Number: JP-JNJFOC-20081002831

PATIENT
  Sex: Male

DRUGS (14)
  1. DUROTEP MT PATCH [Suspect]
     Route: 062
  2. DUROTEP MT PATCH [Suspect]
     Route: 062
  3. DUROTEP MT PATCH [Suspect]
     Route: 062
  4. DUROTEP MT PATCH [Suspect]
     Route: 062
  5. DUROTEP MT PATCH [Suspect]
     Indication: CANCER PAIN
     Route: 062
  6. DUROTEP [Suspect]
     Route: 062
  7. DUROTEP [Suspect]
     Indication: CANCER PAIN
     Route: 062
  8. SELBEX [Concomitant]
     Route: 048
  9. GOSHA-JINKI-GAN [Concomitant]
     Route: 048
  10. CASODEX [Concomitant]
     Route: 048
  11. NULOTAN [Concomitant]
     Route: 048
  12. MAGNESSIUM OXIDE [Concomitant]
     Route: 048
  13. PURSENNID [Concomitant]
     Route: 048
  14. PRIMPERAN TAB [Concomitant]
     Route: 048

REACTIONS (2)
  - HAEMORRHAGE SUBCUTANEOUS [None]
  - WRONG TECHNIQUE IN DRUG USAGE PROCESS [None]
